FAERS Safety Report 11504876 (Version 1)
Quarter: 2015Q3

REPORT INFORMATION
  Report Type: Spontaneous
  Country: US (occurrence: US)
  Receive Date: 20150915
  Receipt Date: 20150915
  Transmission Date: 20151125
  Serious: Yes (Other)
  Sender: FDA-Public Use
  Company Number: US-ROCHE-361111

PATIENT
  Age: 42 Year
  Sex: Female
  Weight: 56.7 kg

DRUGS (4)
  1. ENDOCET [Concomitant]
     Active Substance: ACETAMINOPHEN\OXYCODONE HYDROCHLORIDE
     Indication: PAIN
     Route: 048
  2. PEGASYS [Suspect]
     Active Substance: PEGINTERFERON ALFA-2A
     Indication: HEPATITIS C
     Route: 058
     Dates: start: 20040206, end: 20040723
  3. COPEGUS [Suspect]
     Active Substance: RIBAVIRIN
     Indication: HEPATITIS C
     Route: 048
     Dates: start: 20040206, end: 20040723
  4. METHOCARBAMOL. [Concomitant]
     Active Substance: METHOCARBAMOL
     Indication: MUSCLE SPASMS
     Route: 048

REACTIONS (11)
  - Dyspnoea [Unknown]
  - Sinus disorder [Unknown]
  - Depression [Not Recovered/Not Resolved]
  - Myalgia [Unknown]
  - Insomnia [Recovering/Resolving]
  - Drug administration error [Unknown]
  - Headache [Unknown]
  - Lethargy [Unknown]
  - Suicidal ideation [Recovering/Resolving]
  - Pain [Recovering/Resolving]
  - Diarrhoea [Unknown]

NARRATIVE: CASE EVENT DATE: 200402
